FAERS Safety Report 18973056 (Version 1)
Quarter: 2021Q1

REPORT INFORMATION
  Report Type: Spontaneous
  Country: US (occurrence: US)
  Receive Date: 20210304
  Receipt Date: 20210304
  Transmission Date: 20210420
  Serious: No
  Sender: FDA-Public Use
  Company Number: None

PATIENT
  Age: 60 Year
  Sex: Female

DRUGS (1)
  1. HUMIRA [Suspect]
     Active Substance: ADALIMUMAB
     Indication: PSORIATIC ARTHROPATHY
     Dosage: 1 PEN QWK SQ
     Route: 058
     Dates: start: 20190806

REACTIONS (2)
  - Gastric polyps [None]
  - Precancerous condition [None]

NARRATIVE: CASE EVENT DATE: 20210226
